FAERS Safety Report 22092812 (Version 1)
Quarter: 2023Q1

REPORT INFORMATION
  Report Type: Spontaneous
  Country: NL (occurrence: NL)
  Receive Date: 20230314
  Receipt Date: 20230314
  Transmission Date: 20230418
  Serious: Yes (Other)
  Sender: FDA-Public Use
  Company Number: None

PATIENT

DRUGS (1)
  1. LAMICTAL [Suspect]
     Active Substance: LAMOTRIGINE
     Indication: Epilepsy
     Dosage: 30 MG;CHEWABLE TABLET
     Route: 065
     Dates: start: 20220701

REACTIONS (10)
  - Suicidal ideation [Unknown]
  - Hallucination, auditory [Recovering/Resolving]
  - Oral mucosal blistering [Unknown]
  - Abdominal pain [Recovering/Resolving]
  - Headache [Recovering/Resolving]
  - Anger [Recovering/Resolving]
  - Pain in extremity [Recovering/Resolving]
  - Clumsiness [Not Recovered/Not Resolved]
  - Mood swings [Unknown]
  - Back pain [Recovering/Resolving]
